FAERS Safety Report 5778426-3 (Version None)
Quarter: 2008Q2

REPORT INFORMATION
  Report Type: 
  Country: None (occurrence: None)
  Receive Date: 20080618
  Receipt Date: 20080618
  Transmission Date: 20081010
  Serious: Yes (Hospitalization)
  Sender: FDA-Public Use
  Company Number: None

PATIENT
  Age: 52 Year
  Sex: Male
  Weight: 75.3 kg

DRUGS (1)
  1. WARFARIN SODIUM [Suspect]
     Indication: DEEP VEIN THROMBOSIS
     Dosage: 10MG/DAY X 15MG TU, TH, SAT MG OTHER PO
     Route: 048
     Dates: start: 20071008, end: 20080407

REACTIONS (22)
  - ABDOMINAL PAIN [None]
  - ACTIVATED PARTIAL THROMBOPLASTIN TIME PROLONGED [None]
  - ANAEMIA [None]
  - APNOEA [None]
  - BRAIN STEM SYNDROME [None]
  - CEREBRAL HAEMORRHAGE [None]
  - CONVULSION [None]
  - CORNEAL REFLEX DECREASED [None]
  - FALL [None]
  - GASTROINTESTINAL HAEMORRHAGE [None]
  - HAEMATOCHEZIA [None]
  - HAEMORRHAGIC DIATHESIS [None]
  - HYPOTENSION [None]
  - INTERNATIONAL NORMALISED RATIO INCREASED [None]
  - LACTIC ACIDOSIS [None]
  - LIVER FUNCTION TEST ABNORMAL [None]
  - LOSS OF CONSCIOUSNESS [None]
  - METABOLIC ACIDOSIS [None]
  - PROTHROMBIN TIME PROLONGED [None]
  - PUPIL FIXED [None]
  - UNRESPONSIVE TO STIMULI [None]
  - URINARY INCONTINENCE [None]
